FAERS Safety Report 4902111-0 (Version None)
Quarter: 2006Q1

REPORT INFORMATION
  Report Type: 
  Country: None (occurrence: None)
  Receive Date: 20060206
  Receipt Date: 20060201
  Transmission Date: 20060701
  Serious: Yes (Hospitalization)
  Sender: FDA-Public Use
  Company Number: US-MERCK-0602USA00365

PATIENT
  Age: 64 Year
  Sex: Female
  Weight: 91 kg

DRUGS (5)
  1. CEPHALEXIN [Concomitant]
     Route: 065
  2. VIOXX [Suspect]
     Indication: ARTHRALGIA
     Route: 048
     Dates: start: 20010817, end: 20020420
  3. FUROSEMIDE [Concomitant]
     Route: 065
  4. KLOR-CON [Concomitant]
     Route: 065
  5. METRONIDAZOLE [Concomitant]
     Route: 065

REACTIONS (9)
  - ACUTE MYOCARDIAL INFARCTION [None]
  - BREAST CANCER FEMALE [None]
  - CORONARY ARTERY DISEASE [None]
  - DIASTOLIC DYSFUNCTION [None]
  - HERNIA [None]
  - HYPERCHOLESTEROLAEMIA [None]
  - HYPERTENSION [None]
  - MITRAL VALVE INCOMPETENCE [None]
  - VENTRICULAR DYSFUNCTION [None]
